FAERS Safety Report 7977273-1 (Version None)
Quarter: 2011Q4

REPORT INFORMATION
  Report Type: 
  Country: None (occurrence: None)
  Receive Date: 20111213
  Receipt Date: 20111115
  Transmission Date: 20120403
  Serious: No
  Sender: FDA-Public Use
  Company Number: US-AMGEN-KDL220323

PATIENT
  Age: 65 Year
  Sex: Female

DRUGS (2)
  1. ENBREL [Suspect]
     Dosage: UNK
     Dates: start: 20050101
  2. ENBREL [Suspect]
     Indication: RHEUMATOID ARTHRITIS
     Dosage: 50 MG, QWK
     Route: 058
     Dates: start: 20030901

REACTIONS (6)
  - NIGHT SWEATS [None]
  - PYREXIA [None]
  - VIRAL INFECTION [None]
  - RHEUMATOID ARTHRITIS [None]
  - ANAEMIA [None]
  - NASOPHARYNGITIS [None]
